FAERS Safety Report 5774114-8 (Version None)
Quarter: 2008Q2

REPORT INFORMATION
  Report Type: 
  Country: None (occurrence: None)
  Receive Date: 20080616
  Receipt Date: 20080609
  Transmission Date: 20081010
  Serious: Yes (Other)
  Sender: FDA-Public Use
  Company Number: US-MERCK-0806USA02572

PATIENT

DRUGS (1)
  1. FOSAMAX [Suspect]
     Route: 048

REACTIONS (1)
  - FEMUR FRACTURE [None]
